FAERS Safety Report 11149099 (Version 1)
Quarter: 2015Q2

REPORT INFORMATION
  Report Type: Spontaneous
  Country: FR (occurrence: FR)
  Receive Date: 20150529
  Receipt Date: 20150529
  Transmission Date: 20150821
  Serious: Yes (Other)
  Sender: FDA-Public Use
  Company Number: FR-LEO PHARMA-234633

PATIENT
  Age: 70 Year
  Sex: Female

DRUGS (1)
  1. PICATO [Suspect]
     Active Substance: INGENOL MEBUTATE
     Indication: SKIN LESION
     Route: 061
     Dates: start: 20150325, end: 20150325

REACTIONS (13)
  - Application site pain [Recovered/Resolved with Sequelae]
  - Application site erosion [Recovered/Resolved with Sequelae]
  - Headache [Recovered/Resolved with Sequelae]
  - Off label use [Unknown]
  - Blood pressure increased [Recovered/Resolved with Sequelae]
  - Glossodynia [Recovered/Resolved with Sequelae]
  - Incorrect drug administration duration [Unknown]
  - Application site haemorrhage [Recovered/Resolved with Sequelae]
  - Plicated tongue [Recovered/Resolved with Sequelae]
  - Dysgeusia [Recovered/Resolved with Sequelae]
  - Application site oedema [Recovered/Resolved]
  - Dry mouth [Recovered/Resolved with Sequelae]
  - Dry eye [Recovered/Resolved with Sequelae]

NARRATIVE: CASE EVENT DATE: 201503
